FAERS Safety Report 11047314 (Version 1)
Quarter: 2015Q2

REPORT INFORMATION
  Report Type: Report from Study
  Country: US (occurrence: US)
  Receive Date: 20150420
  Receipt Date: 20150420
  Transmission Date: 20150821
  Serious: Yes (Hospitalization)
  Sender: FDA-Public Use
  Company Number: US-TAKEDA-2015MPI002353

PATIENT
  Age: 54 Year
  Sex: Female
  Weight: 72.38 kg

DRUGS (13)
  1. MODAFINIL. [Concomitant]
     Active Substance: MODAFINIL
  2. VALTREX [Concomitant]
     Active Substance: VALACYCLOVIR HYDROCHLORIDE
  3. ZOFRAN                             /00955301/ [Concomitant]
     Active Substance: ONDANSETRON HYDROCHLORIDE
  4. BACLOFEN. [Concomitant]
     Active Substance: BACLOFEN
  5. ATIVAN [Concomitant]
     Active Substance: LORAZEPAM
  6. TESSALON [Concomitant]
     Active Substance: BENZONATATE
  7. VELCADE [Suspect]
     Active Substance: BORTEZOMIB
     Route: 042
  8. LENALIDOMIDE [Suspect]
     Active Substance: LENALIDOMIDE
     Indication: PLASMA CELL MYELOMA
     Dosage: 5 MG, QD
     Route: 048
     Dates: start: 20140203, end: 20150325
  9. TOPIRAMATE. [Concomitant]
     Active Substance: TOPIRAMATE
  10. ASPIRIN. [Concomitant]
     Active Substance: ASPIRIN
  11. NEUPOGEN [Concomitant]
     Active Substance: FILGRASTIM
  12. DEXAMETHASONE. [Suspect]
     Active Substance: DEXAMETHASONE
     Indication: PLASMA CELL MYELOMA
     Route: 048
  13. GABAPENTIN. [Concomitant]
     Active Substance: GABAPENTIN

REACTIONS (2)
  - Dysphagia [Not Recovered/Not Resolved]
  - Chronic inflammatory demyelinating polyradiculoneuropathy [Not Recovered/Not Resolved]

NARRATIVE: CASE EVENT DATE: 20150406
